FAERS Safety Report 12569902 (Version 1)
Quarter: 2016Q3

REPORT INFORMATION
  Report Type: Spontaneous
  Country: PT (occurrence: PT)
  Receive Date: 20160719
  Receipt Date: 20160719
  Transmission Date: 20161109
  Serious: Yes (Other)
  Sender: FDA-Public Use
  Company Number: PT-GLAXOSMITHKLINE-PT2016GSK100992

PATIENT
  Age: 73 Year
  Sex: Female

DRUGS (3)
  1. OMACOR [Suspect]
     Active Substance: OMEGA-3-ACID ETHYL ESTERS
     Indication: HYPERCHOLESTEROLAEMIA
     Dosage: 1000 MG, 1D
     Route: 048
  2. BRINZOLAMIDE [Concomitant]
     Active Substance: BRINZOLAMIDE
     Route: 047
  3. POVIDONE [Concomitant]
     Active Substance: POVIDONE

REACTIONS (3)
  - Pharyngeal oedema [Recovering/Resolving]
  - Lip oedema [Recovering/Resolving]
  - Erythema [Recovering/Resolving]
